FAERS Safety Report 22238314 (Version 3)
Quarter: 2023Q4

REPORT INFORMATION
  Report Type: Spontaneous
  Country: JP (occurrence: JP)
  Receive Date: 20230421
  Receipt Date: 20231122
  Transmission Date: 20240110
  Serious: Yes (Other)
  Sender: FDA-Public Use
  Company Number: JP-ASTELLAS-2023JP004865

PATIENT
  Age: 7 Decade
  Sex: Male

DRUGS (2)
  1. PADCEV [Suspect]
     Active Substance: ENFORTUMAB VEDOTIN-EJFV
     Indication: Transitional cell carcinoma
     Dosage: UNK UNK, ONCE-WEEKLY ADMINISTRATION FOR 3 CONSECUTIVE WEEKS, FOLLOWED BY INTERRUPTION IN WEEK 4
     Route: 041
     Dates: start: 20230113
  2. PADCEV [Suspect]
     Active Substance: ENFORTUMAB VEDOTIN-EJFV
     Dosage: UNK UNK, ONCE-WEEKLY ADMINISTRATION FOR 3 CONSECUTIVE WEEKS, FOLLOWED BY INTERRUPTION IN WEEK 4
     Route: 041
     Dates: start: 20230412

REACTIONS (1)
  - Cachexia [Not Recovered/Not Resolved]
